FAERS Safety Report 5712114-4 (Version None)
Quarter: 2008Q2

REPORT INFORMATION
  Report Type: 
  Country: None (occurrence: None)
  Receive Date: 20080417
  Receipt Date: 20080403
  Transmission Date: 20081010
  Serious: No
  Sender: FDA-Public Use
  Company Number: 000439

PATIENT
  Age: 74 Year
  Sex: Male

DRUGS (6)
  1. PLETAL [Suspect]
     Indication: CEREBRAL INFARCTION
     Dosage: BLINDED, INFORMATION WITHHELD
     Dates: start: 20060630, end: 20080403
  2. MARZULENE-S (SODIUM AZULENE SULFONATE/L-GLUTAMINE) [Concomitant]
  3. JUVELA (TOCOPHEROL ACETATE) [Concomitant]
  4. OLMESARTAN MEDOXOMIL [Concomitant]
  5. CALBLOCK (AZELNIDIPINE) [Concomitant]
  6. MS ONSHIPPU (CATAPLASMATA) TAPE (INCLUDING POULTICE) [Concomitant]

REACTIONS (2)
  - HAEMORRHOIDAL HAEMORRHAGE [None]
  - LARGE INTESTINE CARCINOMA [None]
